FAERS Safety Report 12799168 (Version 2)
Quarter: 2017Q1

REPORT INFORMATION
  Report Type: Spontaneous
  Country: None (occurrence: FR)
  Receive Date: 20160930
  Receipt Date: 20170112
  Transmission Date: 20170428
  Serious: Yes (Hospitalization)
  Sender: FDA-Public Use
  Company Number: FR-MEDAC PHARMA, INC.-1057874

PATIENT
  Age: 75 Year
  Sex: Male

DRUGS (2)
  1. METOJECT [Suspect]
     Active Substance: METHOTREXATE SODIUM
     Route: 058
     Dates: start: 2008, end: 201607
  2. MABTHERA [Concomitant]
     Active Substance: RITUXIMAB
     Dates: start: 201212

REACTIONS (1)
  - Bladder cancer recurrent [Recovered/Resolved]

NARRATIVE: CASE EVENT DATE: 201607
